FAERS Safety Report 23358580 (Version 1)
Quarter: 2024Q1

REPORT INFORMATION
  Report Type: Spontaneous
  Country: None (occurrence: FR)
  Receive Date: 20240102
  Receipt Date: 20240102
  Transmission Date: 20240410
  Serious: Yes (Other)
  Sender: FDA-Public Use
  Company Number: FR-B.Braun Medical Inc.-2150032

PATIENT
  Age: 77 Year
  Sex: Male

DRUGS (13)
  1. HEPARIN SODIUM IN DEXTROSE [Suspect]
     Active Substance: HEPARIN SODIUM
     Indication: Stent placement
     Route: 042
  2. CLOPIDOGREL [Suspect]
     Active Substance: CLOPIDOGREL BISULFATE
  3. VERAPAMIL HYDROCHLORIDE [Suspect]
     Active Substance: VERAPAMIL HYDROCHLORIDE
  4. ISOSORBIDE [Suspect]
     Active Substance: ISOSORBIDE
  5. VISIPAQUE [Suspect]
     Active Substance: IODIXANOL
  6. ACEBUTOLOL [Concomitant]
     Active Substance: ACEBUTOLOL
  7. INDAPAMIDE\PERINDOPRIL [Concomitant]
     Active Substance: INDAPAMIDE\PERINDOPRIL
  8. VALPROATE SODIUM [Concomitant]
     Active Substance: VALPROATE SODIUM
  9. FUROSEMIDE [Concomitant]
     Active Substance: FUROSEMIDE
  10. KARDEGIC [Concomitant]
     Active Substance: ASPIRIN DL-LYSINE
  11. LIPTRUZET [Concomitant]
     Active Substance: ATORVASTATIN CALCIUM\EZETIMIBE
  12. PANTOPRAZOLE [Concomitant]
     Active Substance: PANTOPRAZOLE
  13. RIVOTRIL [Concomitant]
     Active Substance: CLONAZEPAM

REACTIONS (1)
  - Rash pruritic [None]
